FAERS Safety Report 4532809-8 (Version None)
Quarter: 2004Q4

REPORT INFORMATION
  Report Type: 
  Country: None (occurrence: None)
  Receive Date: 20041206
  Receipt Date: 20041018
  Transmission Date: 20050328
  Serious: No
  Sender: FDA-Public Use
  Company Number: USA041081430

PATIENT
  Age: 49 Year
  Sex: Female

DRUGS (3)
  1. CYMBALTA [Suspect]
     Dosage: 30 MG DAY
     Dates: start: 20040901
  2. NEURONTIN (GABAPENTIN PFIZER) [Concomitant]
  3. AMBIEN [Concomitant]

REACTIONS (1)
  - INSOMNIA [None]
